FAERS Safety Report 6875406-1 (Version None)
Quarter: 2010Q3

REPORT INFORMATION
  Report Type: 
  Country: None (occurrence: None)
  Receive Date: 20100727
  Receipt Date: 20100715
  Transmission Date: 20110219
  Serious: Yes (Other)
  Sender: FDA-Public Use
  Company Number: AU-JNJFOC-20100705857

PATIENT
  Sex: Female
  Weight: 65 kg

DRUGS (1)
  1. STELARA [Suspect]
     Indication: PRODUCT USED FOR UNKNOWN INDICATION
     Dosage: WEEK 0
     Route: 058

REACTIONS (6)
  - BURNING SENSATION [None]
  - FATIGUE [None]
  - LOWER RESPIRATORY TRACT INFECTION [None]
  - NIGHT SWEATS [None]
  - RASH VESICULAR [None]
  - SINUSITIS [None]
